FAERS Safety Report 17631577 (Version 2)
Quarter: 2020Q2

REPORT INFORMATION
  Report Type: Spontaneous
  Country: US (occurrence: US)
  Receive Date: 20200406
  Receipt Date: 20200626
  Transmission Date: 20200713
  Serious: Yes (Death, Hospitalization, Other)
  Sender: FDA-Public Use
  Company Number: US-009507513-2004USA001510

PATIENT
  Sex: Female
  Weight: 88.89 kg

DRUGS (4)
  1. JANUVIA [Suspect]
     Active Substance: SITAGLIPTIN PHOSPHATE
     Indication: TYPE 2 DIABETES MELLITUS
     Dosage: 50 MILLIGRAM, ONCE A DAY
     Route: 048
     Dates: start: 201801, end: 201805
  2. VICTOZA [Suspect]
     Active Substance: LIRAGLUTIDE
     Indication: TYPE 2 DIABETES MELLITUS
     Dosage: UNK; STRENGTH: 18 MG/3 ML
     Dates: start: 201710
  3. JANUVIA [Suspect]
     Active Substance: SITAGLIPTIN PHOSPHATE
     Dosage: 100 MILLIGRAM, ONCE A DAY
     Route: 048
     Dates: start: 201806, end: 201806
  4. VICTOZA [Suspect]
     Active Substance: LIRAGLUTIDE
     Dosage: 1.2 MILLIGRAM, ONCE A DAY
     Dates: start: 201806, end: 201806

REACTIONS (25)
  - Death [Fatal]
  - Sphincter of Oddi dysfunction [Unknown]
  - Proctitis [Unknown]
  - Overweight [Unknown]
  - Malnutrition [Unknown]
  - Metastases to nervous system [Unknown]
  - Ascites [Unknown]
  - Pancreatic carcinoma metastatic [Unknown]
  - Tachycardia [Unknown]
  - Thyroid mass [Unknown]
  - Metastases to lymph nodes [Unknown]
  - Breast disorder [Unknown]
  - Tonsillectomy [Unknown]
  - Colitis [Unknown]
  - Biliary dilatation [Unknown]
  - Pancreatitis [Unknown]
  - Hepatic cyst [Unknown]
  - Cystocele [Unknown]
  - Tumour invasion [Unknown]
  - Dyspnoea exertional [Unknown]
  - Aortic arteriosclerosis [Unknown]
  - Gallbladder disorder [Unknown]
  - Umbilical hernia [Unknown]
  - Anaemia [Unknown]
  - White blood cell count increased [Unknown]

NARRATIVE: CASE EVENT DATE: 2018
